FAERS Safety Report 13445505 (Version 1)
Quarter: 2017Q2

REPORT INFORMATION
  Report Type: Spontaneous
  Country: US (occurrence: US)
  Receive Date: 20170415
  Receipt Date: 20170415
  Transmission Date: 20170830
  Serious: Yes (Hospitalization)
  Sender: FDA-Public Use
  Company Number: US-ACCORD-050298

PATIENT
  Sex: Male

DRUGS (1)
  1. FLUOROURACIL. [Suspect]
     Active Substance: FLUOROURACIL
     Indication: PRODUCT USED FOR UNKNOWN INDICATION
     Dosage: RECEIVED ENTIRE 4-DAY DOSE IN LESS THAN 1 HOUR
     Route: 042

REACTIONS (2)
  - Medication error [Unknown]
  - Accidental overdose [Unknown]
